FAERS Safety Report 19176035 (Version 8)
Quarter: 2022Q1

REPORT INFORMATION
  Report Type: Report from Study
  Country: US (occurrence: US)
  Receive Date: 20210423
  Receipt Date: 20220221
  Transmission Date: 20220423
  Serious: Yes (Hospitalization, Other)
  Sender: FDA-Public Use
  Company Number: US-TAKEDA-US202018327

PATIENT
  Sex: Female
  Weight: 90 kg

DRUGS (21)
  1. PARATHYROID HORMONE [Suspect]
     Active Substance: PARATHYROID HORMONE
     Indication: Hypoparathyroidism
     Dosage: 100 MICROGRAM, QD
     Route: 065
     Dates: start: 20150909, end: 20190405
  2. PARATHYROID HORMONE [Suspect]
     Active Substance: PARATHYROID HORMONE
     Indication: Hypoparathyroidism
     Dosage: 100 MICROGRAM, QD
     Route: 065
     Dates: start: 20150909, end: 20190405
  3. PARATHYROID HORMONE [Suspect]
     Active Substance: PARATHYROID HORMONE
     Indication: Hypoparathyroidism
     Dosage: 100 MICROGRAM, QD
     Route: 065
     Dates: start: 20150909, end: 20190405
  4. PARATHYROID HORMONE [Suspect]
     Active Substance: PARATHYROID HORMONE
     Dosage: 100 MICROGRAM, QD
     Route: 065
  5. PARATHYROID HORMONE [Suspect]
     Active Substance: PARATHYROID HORMONE
     Dosage: 100 MICROGRAM, QD
     Route: 065
  6. PARATHYROID HORMONE [Suspect]
     Active Substance: PARATHYROID HORMONE
     Dosage: 100 MICROGRAM, QD
     Route: 065
  7. IBUPROFEN [Concomitant]
     Active Substance: IBUPROFEN
     Indication: Pain
     Dosage: UNK
     Route: 048
     Dates: start: 20140717, end: 20170510
  8. ZOFRAN [Concomitant]
     Active Substance: ONDANSETRON HYDROCHLORIDE
     Indication: Nausea
     Dosage: UNK
     Dates: start: 20140409
  9. POTASSIUM [Concomitant]
     Active Substance: POTASSIUM
     Indication: Hypokalaemia
     Dosage: UNK
     Dates: start: 20140703
  10. SYNTHROID [Concomitant]
     Active Substance: LEVOTHYROXINE SODIUM
     Indication: Hypothyroidism
     Dosage: UNK
     Route: 065
     Dates: start: 20120612
  11. ESTRADIOL [Concomitant]
     Active Substance: ESTRADIOL
     Indication: Hypogonadism
     Dosage: UNK, 2/WEEK
     Dates: start: 20150109
  12. ACETAMINOPHEN\OXYCODONE HYDROCHLORIDE\OXYCODONE TEREPHTHALATE [Concomitant]
     Active Substance: ACETAMINOPHEN\OXYCODONE HYDROCHLORIDE\OXYCODONE TEREPHTHALATE
     Indication: Pain
     Dosage: UNK
     Route: 048
     Dates: start: 20131120, end: 20170608
  13. PROMETHAZINE HYDROCHLORIDE [Concomitant]
     Active Substance: PROMETHAZINE HYDROCHLORIDE
     Indication: Nausea
     Dosage: UNK
     Route: 048
     Dates: start: 20140410
  14. ALBUTEROL SULFATE [Concomitant]
     Active Substance: ALBUTEROL SULFATE
     Indication: Dyspnoea
     Dosage: UNK
     Route: 055
     Dates: start: 20160106
  15. CYCLOBENZAPRINE [Concomitant]
     Active Substance: CYCLOBENZAPRINE
     Indication: Idiopathic intracranial hypertension
     Dosage: UNK
     Route: 048
     Dates: start: 20160709, end: 201607
  16. DOCUSATE SODIUM [Concomitant]
     Active Substance: DOCUSATE SODIUM
     Indication: Idiopathic intracranial hypertension
     Dosage: UNK
     Route: 048
     Dates: start: 20160709, end: 201607
  17. OXYCODONE [Concomitant]
     Active Substance: OXYCODONE
     Indication: Idiopathic intracranial hypertension
     Dosage: UNK
     Route: 048
     Dates: start: 20160709, end: 201607
  18. POLYETHYLENE GLYCOL [Concomitant]
     Active Substance: POLYETHYLENE GLYCOL
     Indication: Idiopathic intracranial hypertension
     Dosage: UNK
     Route: 048
     Dates: start: 20160709, end: 201607
  19. ACETAMINOPHEN\HYDROCODONE [Concomitant]
     Active Substance: ACETAMINOPHEN\HYDROCODONE
     Indication: Condition aggravated
     Dosage: UNK
     Route: 048
     Dates: start: 20160828, end: 201609
  20. TRAMADOL [Concomitant]
     Active Substance: TRAMADOL
     Indication: Condition aggravated
     Dosage: 50 MILLIGRAM
     Route: 048
     Dates: start: 20160828, end: 201610
  21. KEFLEX [Concomitant]
     Active Substance: CEPHALEXIN
     Indication: Shunt infection
     Dosage: 250 MILLIGRAM
     Route: 048
     Dates: start: 20160819, end: 20160828

REACTIONS (4)
  - Idiopathic intracranial hypertension [Recovered/Resolved]
  - Postoperative wound infection [Recovered/Resolved]
  - Infectious pleural effusion [Recovered/Resolved]
  - Staphylococcal infection [Recovered/Resolved]

NARRATIVE: CASE EVENT DATE: 20160613
